FAERS Safety Report 7076533-9 (Version None)
Quarter: 2010Q4

REPORT INFORMATION
  Report Type: 
  Country: None (occurrence: None)
  Receive Date: 20101101
  Receipt Date: 20101022
  Transmission Date: 20110411
  Serious: Yes (Hospitalization, Other)
  Sender: FDA-Public Use
  Company Number: JP-PFIZER INC-2010133468

PATIENT
  Age: 60 Year
  Sex: Male

DRUGS (1)
  1. CHAMPIX [Suspect]
     Dosage: 1 MG, 2X/DAY
     Route: 048
     Dates: start: 20100930

REACTIONS (4)
  - HEPATIC FUNCTION ABNORMAL [None]
  - HEPATITIS B [None]
  - HEPATITIS B E ANTIGEN POSITIVE [None]
  - MALAISE [None]
